FAERS Safety Report 5744548-6 (Version None)
Quarter: 2008Q2

REPORT INFORMATION
  Report Type: 
  Country: None (occurrence: None)
  Receive Date: 20080516
  Receipt Date: 20080508
  Transmission Date: 20081010
  Serious: Yes (Hospitalization, Other)
  Sender: FDA-Public Use
  Company Number: 2008S1005342

PATIENT
  Age: 60 Year
  Sex: Female
  Weight: 58.514 kg

DRUGS (5)
  1. MELOXICAM [Suspect]
     Indication: ARTHRITIS
     Dosage: 15 MG; AS NEEDED; ORAL
     Route: 048
     Dates: start: 20071101, end: 20080101
  2. MELOXICAM [Suspect]
     Indication: INTERVERTEBRAL DISC DEGENERATION
     Dosage: 15 MG; AS NEEDED; ORAL
     Route: 048
     Dates: start: 20071101, end: 20080101
  3. TRAMADOL HCL [Concomitant]
  4. ENALAPRIL MALEATE [Concomitant]
  5. EFFEXOR XR [Concomitant]

REACTIONS (12)
  - ABDOMINAL PAIN UPPER [None]
  - ASTHENIA [None]
  - DEHYDRATION [None]
  - FALL [None]
  - GASTROINTESTINAL HAEMORRHAGE [None]
  - GASTROINTESTINAL ULCER [None]
  - HAEMOGLOBIN DECREASED [None]
  - LOSS OF CONSCIOUSNESS [None]
  - MALAISE [None]
  - MELAENA [None]
  - PERIPHERAL COLDNESS [None]
  - VOMITING [None]
